FAERS Safety Report 7433707-2 (Version None)
Quarter: 2011Q2

REPORT INFORMATION
  Report Type: 
  Country: None (occurrence: None)
  Receive Date: 20110422
  Receipt Date: 20110411
  Transmission Date: 20111010
  Serious: Yes (Death, Hospitalization, Other)
  Sender: FDA-Public Use
  Company Number: KR-AMGEN-KORSP2011020825

PATIENT
  Age: 47 Year
  Sex: Male

DRUGS (18)
  1. ZYLORIC                            /00003301/ [Concomitant]
     Dosage: UNCERTAINTY
     Route: 065
     Dates: start: 20101015, end: 20110410
  2. ZYLORIC                            /00003301/ [Concomitant]
     Dosage: UNCERTAINTY
     Route: 065
     Dates: start: 20101015, end: 20110410
  3. RENALMIN [Concomitant]
     Dosage: UNK
     Dates: start: 20101015, end: 20110410
  4. ZYLORIC                            /00003301/ [Concomitant]
     Dosage: UNCERTAINTY
     Route: 065
     Dates: start: 20101015, end: 20110410
  5. LIPIDIL [Concomitant]
     Dosage: UNK
     Dates: start: 20101015, end: 20110410
  6. HEPARIN [Suspect]
     Indication: THROMBOSIS
     Dosage: 5400 IU, UNK
     Route: 042
     Dates: start: 20101015, end: 20110409
  7. ZYLORIC                            /00003301/ [Concomitant]
     Dosage: UNCERTAINTY
     Route: 065
     Dates: start: 20101015, end: 20110410
  8. THIOCTIC ACID [Concomitant]
     Dosage: UNCERTAINTY
     Route: 065
     Dates: start: 20101015, end: 20110410
  9. REGPARA [Suspect]
     Indication: HYPERPARATHYROIDISM SECONDARY
     Route: 048
     Dates: start: 20101015, end: 20110408
  10. ASPIRIN [Suspect]
     Indication: CORONARY ARTERY DISEASE
     Dosage: 100 MG, UNK
     Route: 048
     Dates: start: 20101015, end: 20110401
  11. ZYLORIC                            /00003301/ [Concomitant]
     Dosage: UNCERTAINTY
     Route: 065
     Dates: start: 20101015, end: 20110410
  12. DIAMICRON MR [Concomitant]
     Dosage: UNK
     Dates: start: 20101015, end: 20110410
  13. RENAGEL                            /01459901/ [Concomitant]
     Dosage: UNK
     Dates: start: 20101015, end: 20110410
  14. ZYLORIC                            /00003301/ [Concomitant]
     Dosage: UNCERTAINTY
     Route: 065
     Dates: start: 20101015, end: 20110410
  15. ACTOS [Concomitant]
     Dosage: UNCERTAINTY
     Route: 065
     Dates: start: 20101015, end: 20110410
  16. KALIMATE                           /00067701/ [Concomitant]
     Dosage: UNK
     Dates: start: 20101015, end: 20110410
  17. PHOSLO [Concomitant]
     Dosage: UNK
     Dates: start: 20101015, end: 20110410
  18. ZYLORIC                            /00003301/ [Concomitant]
     Dosage: UNCERTAINTY
     Route: 065
     Dates: start: 20101015, end: 20110410

REACTIONS (6)
  - VENTRICULAR TACHYCARDIA [None]
  - REFLUX OESOPHAGITIS [None]
  - CARDIAC ARREST [None]
  - AZOTAEMIA [None]
  - GASTROINTESTINAL HAEMORRHAGE [None]
  - DIZZINESS [None]
